FAERS Safety Report 14258239 (Version 2)
Quarter: 2017Q4

REPORT INFORMATION
  Report Type: Spontaneous
  Country: US (occurrence: US)
  Receive Date: 20171207
  Receipt Date: 20171223
  Transmission Date: 20180321
  Serious: No
  Sender: FDA-Public Use
  Company Number: US-SHIRE-US201729123

PATIENT

DRUGS (1)
  1. XIIDRA [Suspect]
     Active Substance: LIFITEGRAST
     Indication: PRODUCT USED FOR UNKNOWN INDICATION
     Dosage: UNK
     Route: 065
     Dates: end: 20171105

REACTIONS (6)
  - Photopsia [Unknown]
  - Instillation site lacrimation [Unknown]
  - Visual impairment [Unknown]
  - Instillation site reaction [Unknown]
  - Instillation site pain [Unknown]
  - Wrong technique in product usage process [Unknown]
